FAERS Safety Report 21535304 (Version 1)
Quarter: 2022Q4

REPORT INFORMATION
  Report Type: Spontaneous
  Country: US (occurrence: US)
  Receive Date: 20221101
  Receipt Date: 20221101
  Transmission Date: 20230113
  Serious: No
  Sender: FDA-Public Use
  Company Number: US-MIGRATION_PFIZER-2022BHV002034

PATIENT
  Age: 49 Year

DRUGS (1)
  1. NURTEC ODT [Suspect]
     Active Substance: RIMEGEPANT SULFATE
     Indication: Prophylaxis
     Dosage: 16 FOR EVERY OTHER DAY, SO FOR PREVENTION
     Route: 065
     Dates: start: 2022, end: 202207

REACTIONS (4)
  - Mood swings [Unknown]
  - Palpitations [Unknown]
  - Tremor [Unknown]
  - Abdominal pain upper [Unknown]
